FAERS Safety Report 9320853 (Version 1)
Quarter: 2013Q2

REPORT INFORMATION
  Report Type: Spontaneous
  Country: US (occurrence: US)
  Receive Date: 20130531
  Receipt Date: 20130531
  Transmission Date: 20140414
  Serious: No
  Sender: FDA-Public Use
  Company Number: US-BIOGENIDEC-2013BI047039

PATIENT
  Sex: Female

DRUGS (1)
  1. AVONEX [Suspect]
     Indication: MULTIPLE SCLEROSIS
     Route: 030
     Dates: start: 20110621

REACTIONS (6)
  - Lethargy [Unknown]
  - Local swelling [Unknown]
  - Fluid retention [Unknown]
  - Temperature intolerance [Unknown]
  - Hyponatraemia [Unknown]
  - Phobia [Unknown]
